FAERS Safety Report 8228161-7 (Version None)
Quarter: 2012Q1

REPORT INFORMATION
  Report Type: 
  Country: None (occurrence: None)
  Receive Date: 20120322
  Receipt Date: 20111212
  Transmission Date: 20120608
  Serious: Yes (Other)
  Sender: FDA-Public Use
  Company Number: US-BRISTOL-MYERS SQUIBB COMPANY-16287054

PATIENT
  Sex: Male

DRUGS (3)
  1. ERBITUX [Suspect]
     Indication: HEAD AND NECK CANCER
     Dosage: FORM: LIQUID.
     Dates: start: 20111205, end: 20111205
  2. TYLENOL [Concomitant]
     Dosage: TAB.
     Dates: start: 20111205, end: 20111205
  3. BENADRYL [Concomitant]
     Dosage: TAB.
     Dates: start: 20111205, end: 20111205

REACTIONS (2)
  - CONVULSION [None]
  - HYPERSENSITIVITY [None]
